FAERS Safety Report 18531948 (Version 1)
Quarter: 2020Q4

REPORT INFORMATION
  Report Type: Report from Study
  Country: None (occurrence: US)
  Receive Date: 20201123
  Receipt Date: 20201123
  Transmission Date: 20210114
  Serious: Yes (Other)
  Sender: FDA-Public Use
  Company Number: US-ABBVIE-20K-163-3655274-00

PATIENT
  Sex: Female

DRUGS (1)
  1. HUMIRA [Suspect]
     Active Substance: ADALIMUMAB
     Indication: CROHN^S DISEASE
     Route: 058

REACTIONS (6)
  - Paraesthesia [Not Recovered/Not Resolved]
  - Illness [Unknown]
  - Kidney infection [Unknown]
  - Memory impairment [Not Recovered/Not Resolved]
  - Nephrolithiasis [Unknown]
  - Sepsis [Unknown]
